FAERS Safety Report 19399161 (Version 1)
Quarter: 2021Q2

REPORT INFORMATION
  Report Type: Spontaneous
  Country: GB (occurrence: GB)
  Receive Date: 20210610
  Receipt Date: 20210610
  Transmission Date: 20210717
  Serious: Yes (Life-Threatening, Other)
  Sender: FDA-Public Use
  Company Number: GB-MYLANLABS-2021M1034113

PATIENT
  Age: 73 Year
  Sex: Female
  Weight: 26.12 kg

DRUGS (5)
  1. RISEDRONIC ACID [Suspect]
     Active Substance: RISEDRONIC ACID
     Indication: OSTEOPENIA
     Dosage: UNK
     Route: 048
     Dates: start: 1996, end: 202008
  2. CALCI?D [Concomitant]
     Active Substance: CALCIUM CARBONATE\CHOLECALCIFEROL
  3. ALENDRONATE [Suspect]
     Active Substance: ALENDRONATE SODIUM
     Indication: OSTEOPENIA
     Dosage: UNK
     Route: 048
     Dates: start: 1996, end: 202008
  4. ATORVASTATIN [Concomitant]
     Active Substance: ATORVASTATIN
  5. LYRINEL XL [Concomitant]
     Active Substance: OXYBUTYNIN

REACTIONS (1)
  - Oesophageal squamous cell carcinoma [Recovered/Resolved]
